FAERS Safety Report 8670229 (Version 2)
Quarter: 2014Q1

REPORT INFORMATION
  Report Type: Report from Study
  Country: GB (occurrence: GB)
  Receive Date: 20120718
  Receipt Date: 20140117
  Transmission Date: 20141002
  Serious: Yes (Hospitalization)
  Sender: FDA-Public Use
  Company Number: GB-ROCHE-1088456

PATIENT
  Age: 79 Year
  Sex: Female
  Weight: 99.79 kg

DRUGS (6)
  1. RANIBIZUMAB [Suspect]
     Indication: PRODUCT USED FOR UNKNOWN INDICATION
     Dosage: LAST DOSE ADMINISTERED 08/JUN/2012
     Route: 050
     Dates: start: 20081206
  2. AMLODIPINE [Concomitant]
     Route: 065
     Dates: start: 2003
  3. ASPIRIN [Concomitant]
     Route: 065
     Dates: start: 2003
  4. GLYCERYL TRINITRATE [Concomitant]
     Route: 065
     Dates: start: 2003
  5. LOSARTAN [Concomitant]
     Route: 065
     Dates: start: 2003
  6. SIMVASTATIN [Concomitant]
     Route: 065
     Dates: start: 2003

REACTIONS (1)
  - Angina unstable [Recovering/Resolving]
